FAERS Safety Report 9419586 (Version 1)
Quarter: 2013Q3

REPORT INFORMATION
  Report Type: Spontaneous
  Country: US (occurrence: None)
  Receive Date: 20130724
  Receipt Date: 20130724
  Transmission Date: 20140515
  Serious: Yes (Other)
  Sender: FDA-Public Use
  Company Number: None

PATIENT
  Age: 62 Year
  Sex: Female
  Weight: 57.15 kg

DRUGS (1)
  1. XIFAXAN (RIFAXIMIN) [Suspect]
     Indication: HEPATIC ENCEPHALOPATHY
     Route: 048
     Dates: start: 20121129, end: 20121204

REACTIONS (9)
  - Constipation [None]
  - Somnolence [None]
  - Gait disturbance [None]
  - Vision blurred [None]
  - Hunger [None]
  - Abdominal rigidity [None]
  - Dyspnoea [None]
  - Eyelid ptosis [None]
  - Alopecia [None]
